APPROVED DRUG PRODUCT: HUMATIN
Active Ingredient: PAROMOMYCIN SULFATE
Strength: EQ 125MG BASE/5ML
Dosage Form/Route: SYRUP;ORAL
Application: A060522 | Product #001
Applicant: PARKE DAVIS DIV WARNER LAMBERT CO
Approved: Approved Prior to Jan 1, 1982 | RLD: No | RS: No | Type: DISCN